FAERS Safety Report 12643340 (Version 2)
Quarter: 2016Q3

REPORT INFORMATION
  Report Type: Spontaneous
  Country: US (occurrence: US)
  Receive Date: 20160811
  Receipt Date: 20160816
  Transmission Date: 20161109
  Serious: No
  Sender: FDA-Public Use
  Company Number: PHEH2016US020115

PATIENT
  Sex: Male

DRUGS (1)
  1. TASIGNA [Suspect]
     Active Substance: NILOTINIB
     Indication: CHRONIC MYELOID LEUKAEMIA
     Dosage: 300 MG, BID
     Route: 048
     Dates: start: 20160801, end: 20160806

REACTIONS (6)
  - Abdominal pain [Unknown]
  - Muscle spasms [Unknown]
  - Pyrexia [Unknown]
  - Dyspnoea [Unknown]
  - Pain of skin [Unknown]
  - Cough [Unknown]
